FAERS Safety Report 11223904 (Version 1)
Quarter: 2015Q2

REPORT INFORMATION
  Report Type: Spontaneous
  Country: FR (occurrence: None)
  Receive Date: 20150625
  Receipt Date: 20150625
  Transmission Date: 20150821
  Serious: Yes (Death, Congenital Anomaly)
  Sender: FDA-Public Use
  Company Number: DEP_03064_2015

PATIENT
  Sex: Female

DRUGS (5)
  1. GABAPENTIN (GABAPENTIN) [Suspect]
     Active Substance: GABAPENTIN
     Indication: MATERNAL EXPOSURE DURING PREGNANCY
  2. ALPRAZOLAM. [Concomitant]
     Active Substance: ALPRAZOLAM
  3. CLONAZEPAM. [Concomitant]
     Active Substance: CLONAZEPAM
  4. PAROXETINE [Concomitant]
     Active Substance: PAROXETINE\PAROXETINE HYDROCHLORIDE
  5. DEXTROPROPOXYPHENE/PARACETAMOL [Concomitant]
     Active Substance: ACETAMINOPHEN\PROPOXYPHENE HYDROCHLORIDE

REACTIONS (5)
  - Micrognathia [None]
  - Multiple congenital abnormalities [None]
  - Oesophageal atresia [None]
  - Foetal exposure during pregnancy [None]
  - Dysmorphism [None]
